FAERS Safety Report 13457864 (Version 3)
Quarter: 2017Q3

REPORT INFORMATION
  Report Type: Spontaneous
  Country: US (occurrence: US)
  Receive Date: 20170419
  Receipt Date: 20170726
  Transmission Date: 20171127
  Serious: No
  Sender: FDA-Public Use
  Company Number: US-BIOGEN-2017BI00389419

PATIENT
  Sex: Female

DRUGS (1)
  1. TYSABRI [Suspect]
     Active Substance: NATALIZUMAB
     Indication: MULTIPLE SCLEROSIS
     Route: 065
     Dates: start: 20090922

REACTIONS (6)
  - Spinal column stenosis [Not Recovered/Not Resolved]
  - Hypoaesthesia [Unknown]
  - Stress [Unknown]
  - Multiple sclerosis [Unknown]
  - Hemiparesis [Not Recovered/Not Resolved]
  - Balance disorder [Not Recovered/Not Resolved]
